FAERS Safety Report 5902163-5 (Version None)
Quarter: 2008Q3

REPORT INFORMATION
  Report Type: 
  Country: None (occurrence: None)
  Receive Date: 20080929
  Receipt Date: 20080918
  Transmission Date: 20090109
  Serious: Yes (Disabling)
  Sender: FDA-Public Use
  Company Number: GB-PFIZER INC-2008079468

PATIENT
  Sex: Male

DRUGS (1)
  1. EPLERENONE [Suspect]
     Indication: CARDIAC FAILURE
     Route: 048
     Dates: start: 20071128, end: 20080130

REACTIONS (2)
  - ARTHRALGIA [None]
  - POLYMYALGIA RHEUMATICA [None]
